FAERS Safety Report 6327800-5 (Version None)
Quarter: 2009Q3

REPORT INFORMATION
  Report Type: 
  Country: None (occurrence: None)
  Receive Date: 20090824
  Receipt Date: 20090817
  Transmission Date: 20100115
  Serious: Yes (Hospitalization)
  Sender: FDA-Public Use
  Company Number: CHPA2009US17238

PATIENT
  Age: 75 Year
  Sex: Female

DRUGS (3)
  1. GAS-X EXTRA STRENGTH SOFTGELS (NCH) SIMETHICONE) SOFT GELATIN CAPSULE [Suspect]
     Indication: FLATULENCE
     Dosage: UP TO 1000MG A DAY, ORAL
     Route: 048
  2. GAS-X CHEWABLE TABLETS UNKNOWN (NCH)(SIMETHICONE) CHEWABLE TABLET [Suspect]
     Indication: FLATULENCE
     Dosage: 1-2 DF, ORAL
     Route: 048
  3. ACIPHEX [Concomitant]

REACTIONS (4)
  - COLITIS [None]
  - DIVERTICULITIS [None]
  - GASTRITIS [None]
  - OVERDOSE [None]
